FAERS Safety Report 10057960 (Version 1)
Quarter: 2014Q2

REPORT INFORMATION
  Report Type: Spontaneous
  Country: US (occurrence: None)
  Receive Date: 20140403
  Receipt Date: 20140403
  Transmission Date: 20141212
  Serious: Yes (Other)
  Sender: FDA-Public Use
  Company Number: None

PATIENT
  Age: 37 Year
  Sex: Female
  Weight: 74.39 kg

DRUGS (1)
  1. DUOXETINE HCL [Suspect]
     Indication: DEPRESSION
     Dosage: 1, ONCE DAILY, TAKEN BY MOUTH
     Route: 048
     Dates: start: 20140128, end: 20140329

REACTIONS (7)
  - Depression [None]
  - Disease recurrence [None]
  - Pain [None]
  - Fear [None]
  - Drug ineffective [None]
  - Product substitution issue [None]
  - Product quality issue [None]
